FAERS Safety Report 24050787 (Version 1)
Quarter: 2024Q3

REPORT INFORMATION
  Report Type: Spontaneous
  Country: JP (occurrence: JP)
  Receive Date: 20240704
  Receipt Date: 20240704
  Transmission Date: 20241016
  Serious: Yes (Death)
  Sender: DR REDDYS
  Company Number: JP-RDY-LIT/JPN/24/0009522

PATIENT
  Age: 34 Year
  Sex: Female

DRUGS (3)
  1. AZACITIDINE [Suspect]
     Active Substance: AZACITIDINE
     Indication: Myelodysplastic syndrome
  2. PACLITAXEL [Concomitant]
     Active Substance: PACLITAXEL
     Indication: Myelodysplastic syndrome
  3. CARBOPLATIN [Concomitant]
     Active Substance: CARBOPLATIN
     Indication: Myelodysplastic syndrome

REACTIONS (1)
  - Infection [Fatal]
